FAERS Safety Report 4463963-4 (Version None)
Quarter: 2004Q4

REPORT INFORMATION
  Report Type: 
  Country: None (occurrence: None)
  Receive Date: 20041001
  Receipt Date: 20040924
  Transmission Date: 20050328
  Serious: Yes (Death, Hospitalization)
  Sender: FDA-Public Use
  Company Number: 200412902EU

PATIENT
  Age: 65 Year
  Sex: Male

DRUGS (3)
  1. TAXOTERE [Suspect]
     Indication: NON-SMALL CELL LUNG CANCER
     Route: 042
     Dates: start: 20040730, end: 20040827
  2. GEMZAR [Concomitant]
     Dates: end: 20040101
  3. CISPLATIN [Concomitant]
     Dates: end: 20040101

REACTIONS (1)
  - INTERSTITIAL LUNG DISEASE [None]
